FAERS Safety Report 11434444 (Version 2)
Quarter: 2015Q4

REPORT INFORMATION
  Report Type: Report from Study
  Country: PL (occurrence: PL)
  Receive Date: 20150831
  Receipt Date: 20151008
  Transmission Date: 20160304
  Serious: Yes (Hospitalization)
  Sender: FDA-Public Use
  Company Number: PL-BIOGENIDEC-2015BI116353

PATIENT
  Age: 45 Year
  Sex: Male
  Weight: 89 kg

DRUGS (11)
  1. KETONAL [Concomitant]
     Active Substance: KETOPROFEN
     Indication: ARTHRALGIA
     Route: 048
     Dates: start: 2010
  2. NASEN [Concomitant]
     Indication: SLEEP DISORDER
     Route: 048
     Dates: start: 20131219
  3. ELICEA [Concomitant]
     Active Substance: ESCITALOPRAM OXALATE
     Indication: DEPRESSED MOOD
     Route: 048
     Dates: start: 20150301
  4. RANIGAST [Concomitant]
     Indication: GASTROOESOPHAGEAL REFLUX DISEASE
     Route: 048
     Dates: start: 2010
  5. BLINDED THERAPY [Concomitant]
     Active Substance: INVESTIGATIONAL PRODUCT
     Route: 042
     Dates: start: 20140116
  6. ANAPRAN [Concomitant]
     Indication: HEADACHE
     Route: 048
     Dates: start: 2011
  7. MOVALIS [Concomitant]
     Active Substance: MELOXICAM
     Indication: ARTHRALGIA
     Route: 048
     Dates: start: 20140306
  8. RENNIE [Concomitant]
     Active Substance: MAGNESIUM CARBONATE
     Indication: GASTROOESOPHAGEAL REFLUX DISEASE
     Route: 048
     Dates: start: 2010
  9. SIMCARD [Concomitant]
     Indication: DYSLIPIDAEMIA
     Route: 048
     Dates: start: 2013
  10. DEXAK [Concomitant]
     Indication: HEADACHE
     Route: 048
     Dates: start: 20150301
  11. AVONEX [Suspect]
     Active Substance: INTERFERON BETA-1A
     Indication: MULTIPLE SCLEROSIS
     Route: 030
     Dates: start: 20140116

REACTIONS (1)
  - Osteoarthritis [Recovered/Resolved]

NARRATIVE: CASE EVENT DATE: 20150615
